FAERS Safety Report 12485470 (Version 1)
Quarter: 2016Q2

REPORT INFORMATION
  Report Type: Spontaneous
  Country: US (occurrence: US)
  Receive Date: 20160621
  Receipt Date: 20160621
  Transmission Date: 20160815
  Serious: No
  Sender: FDA-Public Use
  Company Number: US-SA-2015SA220298

PATIENT
  Age: 19 Year
  Sex: Male
  Weight: 77.2 kg

DRUGS (5)
  1. NORMAL SALINE [Concomitant]
     Active Substance: SODIUM CHLORIDE
     Indication: MEDICATION DILUTION
     Dosage: 1 DOSE AS DIRECTED
     Dates: start: 20150618
  2. L-M-X [Concomitant]
     Dosage: 1 DOSE AS DIRECTED
     Dates: start: 20150618
  3. CEREZYME [Suspect]
     Active Substance: IMIGLUCERASE
     Indication: LIPIDOSIS
     Dosage: DOSE:2800 UNIT(S)
     Route: 042
     Dates: start: 20120222
  4. NORMAL SALINE [Concomitant]
     Active Substance: SODIUM CHLORIDE
     Indication: FLUSHING
     Dosage: 1 DOSE AS DIRECTED
     Dates: start: 20150618
  5. EPIPEN [Concomitant]
     Active Substance: EPINEPHRINE
     Indication: ANAPHYLACTIC REACTION
     Dosage: 1 DOSE AS DIRECTED
     Dates: start: 20150618

REACTIONS (1)
  - Drug dose omission [Unknown]
